FAERS Safety Report 11195510 (Version 1)
Quarter: 2015Q2

REPORT INFORMATION
  Report Type: Spontaneous
  Country: TH (occurrence: None)
  Receive Date: 20150615
  Receipt Date: 20150615
  Transmission Date: 20150821
  Serious: Yes (Hospitalization)
  Sender: FDA-Public Use
  Company Number: FK201502773

PATIENT
  Age: 75 Year
  Sex: Female

DRUGS (1)
  1. ZOLEDRONIC ACID (MANUFACTURER UNKNOWN) (ZOLEDRONIC ACID) (ZOLEDRONIC ACID) [Suspect]
     Active Substance: ZOLEDRONIC ACID
     Indication: BREAST CANCER
     Dosage: 6 WK, INTRAVENOUS
     Route: 042
     Dates: start: 2002

REACTIONS (3)
  - Hip fracture [None]
  - Osteoarthritis [None]
  - Osteonecrosis [None]
